FAERS Safety Report 9931702 (Version 1)
Quarter: 2014Q1

REPORT INFORMATION
  Report Type: Spontaneous
  Country: US (occurrence: None)
  Receive Date: 20140227
  Receipt Date: 20140227
  Transmission Date: 20141002
  Serious: Yes (Life-Threatening, Hospitalization, Disabling)
  Sender: FDA-Public Use
  Company Number: None

PATIENT
  Age: 72 Year
  Sex: Female

DRUGS (15)
  1. VICTOZA [Suspect]
     Indication: DIABETES MELLITUS
     Dates: start: 20130413, end: 20130827
  2. DAILY VITAMIN [Concomitant]
  3. VITAMIN D [Concomitant]
  4. ACYCLOVIR [Concomitant]
  5. AZITHROMYCIN [Concomitant]
  6. CALCIUM [Concomitant]
  7. ZETIA [Concomitant]
  8. FENOFIBRATE [Concomitant]
  9. GLYBURIDE [Concomitant]
  10. LISINOPRIL [Concomitant]
  11. METFORMIN [Concomitant]
  12. MYFORTIC [Concomitant]
  13. PREDNISONE [Concomitant]
  14. PROGRAF [Concomitant]
  15. VICTOZA [Concomitant]

REACTIONS (6)
  - Vomiting projectile [None]
  - Abdominal pain [None]
  - Back pain [None]
  - Asthenia [None]
  - Diarrhoea [None]
  - Malaise [None]
